FAERS Safety Report 11230482 (Version 1)
Quarter: 2015Q2

REPORT INFORMATION
  Report Type: Spontaneous
  Country: US (occurrence: None)
  Receive Date: 20150629
  Receipt Date: 20150629
  Transmission Date: 20150821
  Serious: Yes (Hospitalization)
  Sender: FDA-Public Use
  Company Number: 2015CVI00021

PATIENT
  Age: 64 Year
  Sex: Male
  Weight: 103 kg

DRUGS (6)
  1. AMIODARONE (AMIODARONE) [Suspect]
     Active Substance: AMIODARONE
     Indication: ATRIAL FIBRILLATION
     Route: 048
     Dates: start: 20150522, end: 20150527
  2. DILTIAZEM HYDROCHLORIDE (DILTIAZEM HYDROCHLORIDE) [Suspect]
     Active Substance: DILTIAZEM HYDROCHLORIDE
     Indication: CARDIAC FAILURE
     Route: 042
     Dates: start: 20150525, end: 20150526
  3. PRIMACOR [Suspect]
     Active Substance: MILRINONE LACTATE
     Indication: VENTRICULAR TACHYCARDIA
     Route: 042
     Dates: start: 20150524, end: 20150527
  4. DILTIAZEM HYDROCHLORIDE (DILTIAZEM HYDROCHLORIDE) [Suspect]
     Active Substance: DILTIAZEM HYDROCHLORIDE
     Route: 042
     Dates: start: 20150525, end: 20150526
  5. LANOXIN [Suspect]
     Active Substance: DIGOXIN
     Indication: VENTRICULAR TACHYCARDIA
     Route: 042
     Dates: start: 20150524, end: 20150524
  6. LOSMAPIMOD VS PLACEBO [Suspect]
     Active Substance: LOSMAPIMOD
     Indication: ACUTE CORONARY SYNDROME
     Route: 048
     Dates: start: 20150514, end: 20150528

REACTIONS (4)
  - Cardio-respiratory arrest [None]
  - Ventricular tachycardia [None]
  - Ventricular fibrillation [None]
  - Torsade de pointes [None]
